FAERS Safety Report 10954792 (Version 1)
Quarter: 2015Q1

REPORT INFORMATION
  Report Type: Report from Study
  Country: IT (occurrence: IT)
  Receive Date: 20150325
  Receipt Date: 20150325
  Transmission Date: 20150721
  Serious: Yes (Death, Hospitalization, Disabling, Other)
  Sender: FDA-Public Use
  Company Number: IT-ABBVIE-14P-083-1279207-00

PATIENT
  Sex: Male
  Weight: 70 kg

DRUGS (5)
  1. DUODOPA [Suspect]
     Active Substance: CARBIDOPA\LEVODOPA
     Indication: PARKINSON^S DISEASE
     Dosage: 5.0 ML/H, CONTINOUS
     Route: 050
     Dates: start: 20111101
  2. DUODOPA [Suspect]
     Active Substance: CARBIDOPA\LEVODOPA
     Dosage: 3.9 ML/H
     Route: 050
     Dates: start: 201111, end: 20141006
  3. TOLCAPONE. [Concomitant]
     Active Substance: TOLCAPONE
     Indication: PARKINSON^S DISEASE
     Route: 048
     Dates: end: 20141006
  4. PREGABALIN. [Concomitant]
     Active Substance: PREGABALIN
     Indication: NEUROPATHY PERIPHERAL
     Route: 048
     Dates: start: 2013, end: 20141006
  5. CLOZAPINE. [Concomitant]
     Active Substance: CLOZAPINE
     Indication: PSYCHOTIC DISORDER
     Route: 048
     Dates: start: 2004

REACTIONS (7)
  - Freezing phenomenon [Fatal]
  - Hypovolaemia [Fatal]
  - Femur fracture [Recovered/Resolved]
  - Hypotension [Fatal]
  - Cardiac failure [Fatal]
  - Anaemia [Fatal]
  - Fall [Recovered/Resolved with Sequelae]

NARRATIVE: CASE EVENT DATE: 20140828
